FAERS Safety Report 8232784-9 (Version None)
Quarter: 2012Q1

REPORT INFORMATION
  Report Type: 
  Country: None (occurrence: None)
  Receive Date: 20120323
  Receipt Date: 20120321
  Transmission Date: 20120608
  Serious: Yes (Other)
  Sender: FDA-Public Use
  Company Number: US-MERCK-1103USA01114

PATIENT
  Age: 60 Year
  Sex: Female

DRUGS (3)
  1. FOSAMAX [Suspect]
     Indication: OSTEOPOROSIS PROPHYLAXIS
     Route: 048
     Dates: start: 19980101, end: 20110101
  2. SYNTHROID [Concomitant]
     Route: 065
  3. FOSAMAX [Suspect]
     Route: 048

REACTIONS (8)
  - PAIN IN EXTREMITY [None]
  - BACK DISORDER [None]
  - PAIN IN JAW [None]
  - MYALGIA [None]
  - IMPAIRED HEALING [None]
  - HEADACHE [None]
  - EYE PAIN [None]
  - FEMUR FRACTURE [None]
